FAERS Safety Report 5396743-6 (Version None)
Quarter: 2007Q3

REPORT INFORMATION
  Report Type: 
  Country: None (occurrence: None)
  Receive Date: 20070725
  Receipt Date: 20070713
  Transmission Date: 20080115
  Serious: Yes (Hospitalization, Other)
  Sender: FDA-Public Use
  Company Number: US-ELI_LILLY_AND_COMPANY-US200607000767

PATIENT
  Age: 44 Year
  Sex: Male
  Weight: 74.829 kg

DRUGS (4)
  1. FORTEO [Suspect]
     Indication: OSTEOPOROSIS
     Dates: start: 20070611
  2. FORTEO [Suspect]
     Dosage: UNK, UNK
     Dates: start: 20040601
  3. CALCIUM CHLORIDE [Concomitant]
     Indication: MINERAL SUPPLEMENTATION
     Dosage: UNK UNK, DAILY (1/D)
  4. MULTIVITAMIN [Concomitant]
     Indication: VITAMIN SUPPLEMENTATION
     Dosage: UNK UNK, DAILY (1/D)

REACTIONS (14)
  - ACCIDENT [None]
  - CLAVICLE FRACTURE [None]
  - CLOSTRIDIAL INFECTION [None]
  - HAEMORRHAGE [None]
  - HEAD INJURY [None]
  - IMPAIRED HEALING [None]
  - JOINT DISLOCATION [None]
  - LOSS OF CONSCIOUSNESS [None]
  - MUSCLE ATROPHY [None]
  - RIB FRACTURE [None]
  - ROTATOR CUFF SYNDROME [None]
  - SCAPULA FRACTURE [None]
  - SKULL FRACTURE [None]
  - WEIGHT DECREASED [None]
